FAERS Safety Report 4264567-9 (Version None)
Quarter: 2004Q1

REPORT INFORMATION
  Report Type: 
  Country: None (occurrence: None)
  Receive Date: 20040106
  Receipt Date: 20030829
  Transmission Date: 20041129
  Serious: No
  Sender: FDA-Public Use
  Company Number: WAES 0309USA00284M

PATIENT
  Sex: Female

DRUGS (4)
  1. DIAZEPAM [Concomitant]
     Dates: start: 19910116, end: 19910119
  2. INDOCIN [Suspect]
     Indication: PREMATURE LABOUR
     Route: 054
     Dates: start: 19910116, end: 19910119
  3. MAGNESIUM SULFATE [Concomitant]
     Dates: start: 19910116, end: 19910119
  4. RITODRINE [Concomitant]
     Dates: start: 19910116, end: 19910119

REACTIONS (3)
  - COMPLICATIONS OF MATERNAL EXPOSURE TO THERAPEUTIC DRUGS [None]
  - DRUG EXPOSURE DURING PREGNANCY [None]
  - INFECTION [None]
